FAERS Safety Report 5212180-9 (Version None)
Quarter: 2006Q4

REPORT INFORMATION
  Report Type: 
  Country: None (occurrence: None)
  Receive Date: 20061114
  Receipt Date: 20061003
  Transmission Date: 20070319
  Serious: Yes (Hospitalization)
  Sender: FDA-Public Use
  Company Number: S06-USA-04074-01

PATIENT
  Age: 90 Year
  Sex: Female

DRUGS (4)
  1. NAMENDA [Suspect]
     Indication: DEMENTIA ALZHEIMER'S TYPE
     Dosage: 10 MG BID PO
     Route: 048
     Dates: start: 20060101
  2. NEURONTIN [Concomitant]
  3. CALCITRON [Concomitant]
  4. MECLIZINE [Suspect]

REACTIONS (1)
  - STEVENS-JOHNSON SYNDROME [None]
